FAERS Safety Report 21830925 (Version 1)
Quarter: 2023Q1

REPORT INFORMATION
  Report Type: Spontaneous
  Country: US (occurrence: US)
  Receive Date: 20230106
  Receipt Date: 20230106
  Transmission Date: 20230418
  Serious: No
  Sender: FDA-Public Use
  Company Number: US-PFIZER INC-202300003912

PATIENT
  Age: 29 Year
  Sex: Male

DRUGS (2)
  1. PAXLOVID [Interacting]
     Active Substance: NIRMATRELVIR\RITONAVIR
     Indication: COVID-19 treatment
     Dosage: UNK
     Dates: start: 20221230, end: 20221231
  2. OXYCODONE [Interacting]
     Active Substance: OXYCODONE
     Dosage: 20 MG, 4X/DAY
     Dates: start: 20210101

REACTIONS (3)
  - Hypersomnia [Unknown]
  - Drug interaction [Unknown]
  - Pain [Unknown]

NARRATIVE: CASE EVENT DATE: 20221231
